FAERS Safety Report 7124419-3 (Version None)
Quarter: 2010Q4

REPORT INFORMATION
  Report Type: 
  Country: None (occurrence: None)
  Receive Date: 20101126
  Receipt Date: 20101124
  Transmission Date: 20110411
  Serious: Yes (Hospitalization)
  Sender: FDA-Public Use
  Company Number: GXKR2010DE13193

PATIENT
  Sex: Male

DRUGS (2)
  1. DOXEPIN HCL [Suspect]
     Indication: SLEEP DISORDER
     Dosage: 50 MG, QD
     Route: 048
  2. ATRIPLA [Concomitant]

REACTIONS (5)
  - CONVULSION [None]
  - DRY MOUTH [None]
  - FOAMING AT MOUTH [None]
  - STOMATITIS [None]
  - SYNCOPE [None]
